FAERS Safety Report 8344901-0 (Version None)
Quarter: 2012Q2

REPORT INFORMATION
  Report Type: 
  Country: None (occurrence: None)
  Receive Date: 20120508
  Receipt Date: 20120502
  Transmission Date: 20120825
  Serious: Yes (Other)
  Sender: FDA-Public Use
  Company Number: PHHY2011DE67648

PATIENT
  Sex: Female
  Weight: 65 kg

DRUGS (1)
  1. GILENYA [Suspect]
     Indication: MULTIPLE SCLEROSIS
     Dosage: 0.5 MG, DAILY
     Route: 048
     Dates: start: 20110719

REACTIONS (8)
  - RASH PUSTULAR [None]
  - LYMPHOCYTE COUNT DECREASED [None]
  - FATIGUE [None]
  - RASH [None]
  - FEELING ABNORMAL [None]
  - HYPERKALAEMIA [None]
  - LICHEN PLANUS [None]
  - WHITE BLOOD CELL COUNT DECREASED [None]
